FAERS Safety Report 20052663 (Version 2)
Quarter: 2022Q1

REPORT INFORMATION
  Report Type: Report from Study
  Country: US (occurrence: US)
  Receive Date: 20211110
  Receipt Date: 20220202
  Transmission Date: 20220423
  Serious: Yes (Other)
  Sender: FDA-Public Use
  Company Number: US-ABBVIE-21K-163-4150013-00

PATIENT
  Sex: Female
  Weight: 50.848 kg

DRUGS (8)
  1. HUMIRA [Suspect]
     Active Substance: ADALIMUMAB
     Indication: Rheumatoid arthritis
     Dosage: CITRATE FREE
     Route: 058
     Dates: start: 20210706
  2. HUMIRA [Suspect]
     Active Substance: ADALIMUMAB
     Route: 058
     Dates: start: 20210719
  3. AZATHIOPRINE [Suspect]
     Active Substance: AZATHIOPRINE
     Indication: Cytopenia
     Route: 048
     Dates: start: 20210212, end: 20210911
  4. URSODIOL [Concomitant]
     Active Substance: URSODIOL
     Indication: Primary biliary cholangitis
     Route: 048
     Dates: start: 202004
  5. ALLOPURINOL [Concomitant]
     Active Substance: ALLOPURINOL
     Indication: Autoimmune hepatitis
     Route: 048
     Dates: start: 202104, end: 202110
  6. ESTRADIOL [Concomitant]
     Active Substance: ESTRADIOL
     Indication: Menopause
     Route: 051
     Dates: start: 202103
  7. LISINOPRIL [Concomitant]
     Active Substance: LISINOPRIL
     Indication: Hypertension
     Route: 048
     Dates: start: 2012
  8. PREDNISONE [Concomitant]
     Active Substance: PREDNISONE
     Indication: Inflammation
     Route: 048
     Dates: start: 201911

REACTIONS (3)
  - Myelosuppression [Recovered/Resolved]
  - Hepatic enzyme increased [Unknown]
  - Rash [Unknown]

NARRATIVE: CASE EVENT DATE: 20210101
